FAERS Safety Report 6220260-4 (Version None)
Quarter: 2009Q2

REPORT INFORMATION
  Report Type: 
  Country: None (occurrence: None)
  Receive Date: 20090605
  Receipt Date: 20090525
  Transmission Date: 20091009
  Serious: No
  Sender: FDA-Public Use
  Company Number: 2009-196119-NL

PATIENT
  Age: 84 Year
  Sex: Male

DRUGS (3)
  1. MIRTAZAPINE [Suspect]
     Indication: DEPRESSION
     Dosage: 15 MG
     Dates: end: 20090507
  2. MIRTAZAPINE [Suspect]
     Indication: SLEEP DISORDER
     Dosage: 15 MG
     Dates: end: 20090507
  3. CANDESARTAN CILEXETIL [Concomitant]

REACTIONS (2)
  - BRADYCARDIA [None]
  - CONDITION AGGRAVATED [None]
